FAERS Safety Report 6043769-5 (Version None)
Quarter: 2009Q1

REPORT INFORMATION
  Report Type: 
  Country: None (occurrence: None)
  Receive Date: 20090120
  Receipt Date: 20090112
  Transmission Date: 20090719
  Serious: Yes (Disabling, Other)
  Sender: FDA-Public Use
  Company Number: PHEH2008US09879

PATIENT
  Sex: Female
  Weight: 57.3 kg

DRUGS (14)
  1. GLEEVEC [Suspect]
     Indication: CHRONIC MYELOID LEUKAEMIA
     Dosage: 400 MG, QD
     Route: 048
     Dates: start: 20080901, end: 20081020
  2. CYCLOSPORINE [Suspect]
     Indication: RENAL TRANSPLANT
     Dosage: 25 MG, BID
     Route: 048
     Dates: start: 20050101
  3. CYCLOSPORINE [Suspect]
     Dosage: 200 MG, QD
     Route: 048
     Dates: start: 20071001
  4. FLUCONAZOLE [Concomitant]
     Indication: FUNGAL INFECTION
     Dosage: 200 MG, QD
  5. PREDNISONE [Concomitant]
     Dosage: 5 MG, QD
     Route: 048
  6. METOPROLOL TARTRATE [Concomitant]
     Dosage: 25 MG, BID
  7. KEFLEX [Concomitant]
     Dosage: 250 MG Q PM M, W, F
  8. PRAVACHOL [Concomitant]
     Dosage: 40 MG, QHS
  9. PREMARIN [Concomitant]
     Dosage: 0.25 MG, QD
  10. NEXIUM [Concomitant]
     Dosage: 40 MG, QD
  11. ASPIRIN [Concomitant]
     Dosage: 81 MG, QD
  12. XANAX [Concomitant]
     Dosage: 0.5 MG, PRN
  13. AMBIEN [Concomitant]
     Dosage: 10 MG, PRN
  14. HYDROCODONE BITARTRATE [Concomitant]
     Dosage: PRN

REACTIONS (5)
  - AGRANULOCYTOSIS [None]
  - BIOPSY BONE MARROW [None]
  - BONE MARROW FAILURE [None]
  - DRUG INTERACTION [None]
  - NEUTROPENIA [None]
